FAERS Safety Report 15964378 (Version 1)
Quarter: 2019Q1

REPORT INFORMATION
  Report Type: Report from Study
  Country: CA (occurrence: CA)
  Receive Date: 20190215
  Receipt Date: 20190215
  Transmission Date: 20190417
  Serious: Yes (Hospitalization, Other)
  Sender: FDA-Public Use
  Company Number: CA-AMGEN-CANSL2019020983

PATIENT
  Age: 69 Year
  Sex: Female

DRUGS (1)
  1. PROLIA [Suspect]
     Active Substance: DENOSUMAB
     Indication: OSTEOPOROSIS POSTMENOPAUSAL
     Dosage: UNK
     Route: 065
     Dates: start: 2018

REACTIONS (11)
  - Heart rate irregular [Unknown]
  - Hypertension [Unknown]
  - Self-injurious ideation [Unknown]
  - Depression [Unknown]
  - Deafness [Unknown]
  - Gingival ulceration [Unknown]
  - Skin infection [Unknown]
  - Heart rate increased [Unknown]
  - Dizziness [Unknown]
  - Ear infection viral [Unknown]
  - Fatigue [Unknown]

NARRATIVE: CASE EVENT DATE: 2018
